FAERS Safety Report 18740426 (Version 1)
Quarter: 2021Q1

REPORT INFORMATION
  Report Type: Spontaneous
  Country: IN (occurrence: IN)
  Receive Date: 20210114
  Receipt Date: 20210114
  Transmission Date: 20210419
  Serious: Yes (Other)
  Sender: FDA-Public Use
  Company Number: IN-PFIZER INC-2020494916

PATIENT
  Age: 59 Year
  Sex: Male

DRUGS (1)
  1. DACOPLICE [Suspect]
     Active Substance: DACOMITINIB
     Indication: LUNG ADENOCARCINOMA
     Dosage: 45 MG, 1X/DAY
     Route: 048
     Dates: start: 20201210

REACTIONS (11)
  - Decreased appetite [Unknown]
  - Haemoglobin decreased [Unknown]
  - Mean cell volume decreased [Unknown]
  - Quality of life decreased [Unknown]
  - Neoplasm progression [Unknown]
  - Diarrhoea [Unknown]
  - Platelet count decreased [Unknown]
  - Retching [Unknown]
  - Rash [Unknown]
  - Asthenia [Unknown]
  - Mucosal inflammation [Unknown]
